FAERS Safety Report 8031669-0 (Version None)
Quarter: 2012Q1

REPORT INFORMATION
  Report Type: 
  Country: None (occurrence: None)
  Receive Date: 20120109
  Receipt Date: 20120105
  Transmission Date: 20120608
  Serious: Yes (Death, Hospitalization, Disabling)
  Sender: FDA-Public Use
  Company Number: US-CELGENEUS-163-21880-11103380

PATIENT
  Sex: Male
  Weight: 59.928 kg

DRUGS (13)
  1. ENSURE PLUS [Concomitant]
     Indication: MALNUTRITION
     Route: 065
  2. CIPROFLOXACIN [Concomitant]
     Route: 048
  3. THIAMINE HCL [Concomitant]
     Route: 065
  4. FOLIC ACID [Concomitant]
     Route: 065
  5. REMERON [Concomitant]
     Dosage: 7.5 MILLIGRAM
     Route: 065
  6. MULTI-VITAMINS [Concomitant]
     Route: 065
  7. REVLIMID [Suspect]
     Indication: MYELODYSPLASTIC SYNDROME
     Dosage: 10 MILLIGRAM
     Route: 048
     Dates: start: 20110913, end: 20111011
  8. RILUTEK [Concomitant]
     Route: 065
  9. VITAMIN B-12 [Concomitant]
     Route: 065
  10. FLUID [Concomitant]
     Indication: HYPOTENSION
     Route: 041
  11. ASPIRIN [Concomitant]
     Dosage: 81 MILLIGRAM
     Route: 065
  12. RED BLOOD CELLS [Concomitant]
     Indication: TRANSFUSION
     Dosage: 2 UNITS
     Route: 041
  13. RILUZOLE [Concomitant]
     Route: 065

REACTIONS (4)
  - HYPOTENSION [None]
  - SEPTIC SHOCK [None]
  - ASTHENIA [None]
  - DECREASED APPETITE [None]
